FAERS Safety Report 7928460 (Version 5)
Quarter: 2013Q3

REPORT INFORMATION
  Report Type: Report from Study
  Country: FR (occurrence: FR)
  Receive Date: 20110503
  Receipt Date: 20130902
  Transmission Date: 20140515
  Serious: Yes (Death, Other)
  Sender: FDA-Public Use
  Company Number: FR-ROCHE-774323

PATIENT
  Age: 42 Year
  Sex: Female
  Weight: 60 kg

DRUGS (7)
  1. BEVACIZUMAB [Suspect]
     Indication: NON-SMALL CELL LUNG CANCER
     Route: 065
     Dates: start: 20110120, end: 20110425
  2. PEMETREXED [Suspect]
     Indication: NON-SMALL CELL LUNG CANCER
     Route: 065
  3. CISPLATIN [Suspect]
     Indication: NON-SMALL CELL LUNG CANCER
     Route: 065
  4. SERESTA [Concomitant]
     Indication: ALCOHOL USE
     Dosage: DRUG REPORTED AS: SERESTA 50, DOSE 0.5/0.5/1
     Route: 048
  5. DEPAKINE [Concomitant]
     Indication: EPILEPSY
     Dosage: DRUG REPORTED AS: DEPAKINE 50, DOSE: 1.5
     Route: 048
  6. SPECIAFOLDINE [Concomitant]
     Indication: CHEMOTHERAPY
     Dosage: DRUG REPORTED AS: SPECIAFOLDINE 0.4, DOSE: 1
     Route: 048
  7. NITRIDERM [Concomitant]
     Indication: HYPERTENSION
     Dosage: DOSE REPORTED AS: NITRIDERM 10, ROUTE: PATCH
     Route: 050

REACTIONS (2)
  - Atrioventricular dissociation [Fatal]
  - Tachycardia [Unknown]
